FAERS Safety Report 6786020-0 (Version None)
Quarter: 2010Q2

REPORT INFORMATION
  Report Type: 
  Country: None (occurrence: None)
  Receive Date: 20100621
  Receipt Date: 20100621
  Transmission Date: 20101027
  Serious: Yes (Hospitalization)
  Sender: FDA-Public Use
  Company Number: None

PATIENT
  Sex: Female
  Weight: 55.5 kg

DRUGS (6)
  1. CISPLATIN [Suspect]
     Dosage: 119 MG
     Dates: end: 20100526
  2. CLIMARA [Concomitant]
  3. COMPAZINE [Concomitant]
  4. DARVOCET-N 100 [Concomitant]
  5. SCOPOLAMINE [Concomitant]
  6. SENNA S [Concomitant]

REACTIONS (4)
  - BLOOD CREATININE INCREASED [None]
  - DEHYDRATION [None]
  - NAUSEA [None]
  - VOMITING [None]
